FAERS Safety Report 25727197 (Version 1)
Quarter: 2025Q3

REPORT INFORMATION
  Report Type: Spontaneous
  Country: US (occurrence: US)
  Receive Date: 20250826
  Receipt Date: 20250826
  Transmission Date: 20251021
  Serious: Yes (Other)
  Sender: LEADING PHARMA
  Company Number: US-LEADINGPHARMA-US-2025LEASPO00152

PATIENT
  Age: 72 Year
  Sex: Male
  Weight: 48 kg

DRUGS (1)
  1. HYDROXYUREA [Suspect]
     Active Substance: HYDROXYUREA
     Indication: Polycythaemia vera
     Route: 048

REACTIONS (3)
  - Dementia Alzheimer^s type [Unknown]
  - Confusional state [Unknown]
  - Product use in unapproved indication [Unknown]
